FAERS Safety Report 9282070 (Version 2)
Quarter: 2013Q4

REPORT INFORMATION
  Report Type: Spontaneous
  Country: US (occurrence: US)
  Receive Date: 20130510
  Receipt Date: 20131002
  Transmission Date: 20140711
  Serious: No
  Sender: FDA-Public Use
  Company Number: US-B.I. PHARMACEUTICALS,INC./RIDGEFIELD-2013-BI-12922BP

PATIENT
  Age: 85 Year
  Sex: Female
  Weight: 96 kg

DRUGS (9)
  1. COMBIVENT [Suspect]
     Indication: CHRONIC OBSTRUCTIVE PULMONARY DISEASE
     Dosage: STRENGTH: 20 MCG / 100 MCG; DAILY DOSE: 80 MCG / 400 MCG
     Route: 055
     Dates: start: 20130415, end: 20130503
  2. CELEBREX [Concomitant]
     Indication: ARTHRITIS
     Dosage: 200 MG
     Route: 048
     Dates: start: 2007
  3. SINGULAIR [Concomitant]
  4. DIOVAN [Concomitant]
  5. RANITIDINE [Concomitant]
     Indication: DYSPEPSIA
     Dosage: 600 MG
     Route: 048
     Dates: start: 2007
  6. LEXAPRO [Concomitant]
  7. METFORMIN [Concomitant]
     Indication: DIABETES MELLITUS
     Dosage: 500 MG
     Route: 048
     Dates: start: 2013
  8. DIAZIDE [Concomitant]
  9. WARFARIN [Concomitant]
     Dosage: 4 MG
     Route: 048
     Dates: start: 201212

REACTIONS (3)
  - Vomiting [Recovered/Resolved]
  - Respiration abnormal [Recovered/Resolved]
  - Product quality issue [Recovered/Resolved]
